FAERS Safety Report 10153429 (Version 1)
Quarter: 2014Q2

REPORT INFORMATION
  Report Type: Spontaneous
  Country: US (occurrence: US)
  Receive Date: 20140505
  Receipt Date: 20140505
  Transmission Date: 20141212
  Serious: No
  Sender: FDA-Public Use
  Company Number: US-ASTRAZENECA-2014SE06212

PATIENT
  Age: 38 Year
  Sex: Male

DRUGS (1)
  1. PRILOSEC [Suspect]
     Indication: GASTROOESOPHAGEAL REFLUX DISEASE
     Route: 048
     Dates: end: 201310

REACTIONS (9)
  - Choking [Unknown]
  - Throat irritation [Unknown]
  - Gingival pain [Unknown]
  - Enamel anomaly [Unknown]
  - Vomiting [Unknown]
  - Abdominal pain [Unknown]
  - Middle insomnia [Unknown]
  - Flatulence [Not Recovered/Not Resolved]
  - Drug dose omission [Unknown]
